FAERS Safety Report 11877670 (Version 1)
Quarter: 2015Q4

REPORT INFORMATION
  Report Type: Other
  Country: GB (occurrence: GB)
  Receive Date: 20151230
  Receipt Date: 20151230
  Transmission Date: 20160305
  Serious: Yes (Death, Other)
  Sender: FDA-Public Use
  Company Number: GB-MYLANLABS-2015M1045634

PATIENT

DRUGS (1)
  1. FENTANYL. [Suspect]
     Active Substance: FENTANYL
     Indication: PAIN
     Dosage: 1 DF, UNK
     Route: 062
     Dates: start: 2011

REACTIONS (4)
  - Product physical issue [Unknown]
  - Accidental overdose [Fatal]
  - Product quality issue [Unknown]
  - Toxicity to various agents [Fatal]
